FAERS Safety Report 17467336 (Version 2)
Quarter: 2020Q1

REPORT INFORMATION
  Report Type: Spontaneous
  Country: US (occurrence: US)
  Receive Date: 20200227
  Receipt Date: 20200305
  Transmission Date: 20200409
  Serious: No
  Sender: FDA-Public Use
  Company Number: US-PFIZER INC-2020085620

PATIENT
  Age: 10 Year
  Sex: Female
  Weight: 45 kg

DRUGS (1)
  1. BICILLIN L-A [Suspect]
     Active Substance: PENICILLIN G BENZATHINE
     Indication: ARTHRITIS VIRAL
     Dosage: UNK (AS DIRECTED EVERY FOUR WEEKS/ IT HAS 1.2 MILLION UNITS PER 2 ML)
     Route: 030
     Dates: start: 20200124

REACTIONS (2)
  - Injection site swelling [Not Recovered/Not Resolved]
  - Erythema [Unknown]
